FAERS Safety Report 4988206-4 (Version None)
Quarter: 2006Q2

REPORT INFORMATION
  Report Type: 
  Country: None (occurrence: None)
  Receive Date: 20060425
  Receipt Date: 20060411
  Transmission Date: 20061013
  Serious: Yes (Other)
  Sender: FDA-Public Use
  Company Number: 2006050822

PATIENT
  Age: 59 Year
  Sex: Male

DRUGS (3)
  1. XALATAN [Suspect]
     Indication: GLAUCOMA
     Dosage: UNKNOWN
     Route: 065
     Dates: start: 19990501, end: 20060401
  2. XALACOM (LATANOPROST, TIMOLOL) [Suspect]
     Indication: GLAUCOMA
     Route: 065
     Dates: start: 20030501
  3. TIMOLOL MALEATE [Concomitant]

REACTIONS (1)
  - OCULAR HYPERTENSION [None]
